FAERS Safety Report 16821403 (Version 1)
Quarter: 2019Q3

REPORT INFORMATION
  Report Type: Spontaneous
  Country: NL (occurrence: NL)
  Receive Date: 20190918
  Receipt Date: 20190918
  Transmission Date: 20191005
  Serious: Yes (Other)
  Sender: FDA-Public Use
  Company Number: NL-TEVA-2019-NL-1108131

PATIENT
  Sex: Female

DRUGS (2)
  1. NITROFURANTOINE CAPSULE, 50 MG (MILLIGRAM)NITROFURANTOINE CAPSULE 50 [Suspect]
     Active Substance: NITROFURANTOIN
     Indication: PRODUCT USED FOR UNKNOWN INDICATION
     Dosage: 4 1 DOSAGEFORM
     Dates: start: 20190810, end: 20190814
  2. DAVITAMON MAMA OMEGA 3 I CAPSULE PER DAY [Concomitant]

REACTIONS (9)
  - Nausea [Recovered/Resolved with Sequelae]
  - Cold sweat [Recovered/Resolved with Sequelae]
  - Maternal exposure during pregnancy [Unknown]
  - Blood glucose decreased [Recovered/Resolved with Sequelae]
  - Body temperature increased [Recovered/Resolved with Sequelae]
  - Feeling hot [Recovered/Resolved with Sequelae]
  - Syncope [Recovered/Resolved with Sequelae]
  - Dizziness [Recovered/Resolved with Sequelae]
  - Dry mouth [Recovered/Resolved with Sequelae]
